FAERS Safety Report 15257724 (Version 1)
Quarter: 2018Q3

REPORT INFORMATION
  Report Type: Spontaneous
  Country: US (occurrence: US)
  Receive Date: 20180808
  Receipt Date: 20180808
  Transmission Date: 20181010
  Serious: Yes (Hospitalization)
  Sender: FDA-Public Use
  Company Number: PHHY2018US062469

PATIENT
  Age: 71 Year
  Sex: Male

DRUGS (2)
  1. CARBIDOPA LEVODOPA [Concomitant]
     Active Substance: CARBIDOPA\LEVODOPA
     Indication: PARKINSON^S DISEASE
     Dosage: 5 DF, QD
     Route: 065
  2. ROPINIROLE. [Suspect]
     Active Substance: ROPINIROLE
     Indication: PARKINSON^S DISEASE
     Dosage: 5 MG, TID
     Route: 065

REACTIONS (7)
  - Alcoholism [Recovering/Resolving]
  - Delusion [Recovering/Resolving]
  - Hypersexuality [Recovering/Resolving]
  - Hallucinations, mixed [Recovering/Resolving]
  - Drug abuse [Unknown]
  - Dopamine dysregulation syndrome [Recovering/Resolving]
  - Psychotic behaviour [Recovering/Resolving]
